FAERS Safety Report 18756654 (Version 1)
Quarter: 2021Q1

REPORT INFORMATION
  Report Type: Spontaneous
  Country: FR (occurrence: FR)
  Receive Date: 20210119
  Receipt Date: 20210119
  Transmission Date: 20210419
  Serious: Yes (Hospitalization)
  Sender: FDA-Public Use
  Company Number: FR-PFIZER INC-2021022395

PATIENT
  Age: 61 Year
  Sex: Male
  Weight: 69 kg

DRUGS (10)
  1. ALIMTA [Suspect]
     Active Substance: PEMETREXED DISODIUM
     Indication: NON-SMALL CELL LUNG CANCER
     Dosage: 930 MG, CYCLIC
     Route: 042
     Dates: start: 20200109, end: 20200918
  2. AVASTIN [Suspect]
     Active Substance: BEVACIZUMAB
     Indication: NON-SMALL CELL LUNG CANCER
     Dosage: 670 MG, CYCLIC
     Route: 042
     Dates: start: 20201009, end: 20201120
  3. PAROXETINE. [Concomitant]
     Active Substance: PAROXETINE
  4. CISPLATIN. [Suspect]
     Active Substance: CISPLATIN
     Indication: NON-SMALL CELL LUNG CANCER
     Dosage: 140 MG, CYCLIC
     Route: 042
     Dates: start: 20200109, end: 20200312
  5. OXYCONTIN [Concomitant]
     Active Substance: OXYCODONE HYDROCHLORIDE
  6. OXYNORM [Concomitant]
     Active Substance: OXYCODONE HYDROCHLORIDE
  7. PACLITAXEL. [Suspect]
     Active Substance: PACLITAXEL
     Indication: NON-SMALL CELL LUNG CANCER
     Dosage: 164 MG, CYCLIC
     Route: 042
     Dates: start: 20201009, end: 20201120
  8. KEYTRUDA [Suspect]
     Active Substance: PEMBROLIZUMAB
     Indication: NON-SMALL CELL LUNG CANCER
     Dosage: 200 MG, CYCLIC
     Route: 042
     Dates: start: 20200109, end: 20200918
  9. DOLIPRANE [Concomitant]
     Active Substance: ACETAMINOPHEN
  10. AMLOR [Concomitant]
     Active Substance: AMLODIPINE BESYLATE

REACTIONS (1)
  - Tubulointerstitial nephritis [Recovering/Resolving]

NARRATIVE: CASE EVENT DATE: 20201214
